FAERS Safety Report 7121435-2 (Version None)
Quarter: 2010Q4

REPORT INFORMATION
  Report Type: 
  Country: None (occurrence: None)
  Receive Date: 20101124
  Receipt Date: 20101116
  Transmission Date: 20110411
  Serious: Yes (Other)
  Sender: FDA-Public Use
  Company Number: PHHY2010FR77327

PATIENT
  Age: 81 Year
  Sex: Female

DRUGS (5)
  1. STALEVO 100 [Suspect]
     Indication: PARKINSON'S DISEASE
     Dosage: 200/50/200 MG
     Dates: start: 20100101
  2. ARICEPT [Concomitant]
     Indication: DEMENTIA ALZHEIMER'S TYPE
     Dosage: UNK
  3. LYRICA [Concomitant]
     Indication: HERPES ZOSTER
     Dosage: 50 IN THE MORNING AND 150 IN THE EVENING
  4. LYRICA [Concomitant]
     Dosage: 50 MG, BID
  5. MEPRONIZINE [Concomitant]
     Dosage: UNK
     Dates: end: 20100901

REACTIONS (3)
  - BLOOD AMYLASE INCREASED [None]
  - LIPASE INCREASED [None]
  - PANCREATIC ENZYMES INCREASED [None]
